FAERS Safety Report 5572309-X (Version None)
Quarter: 2007Q4

REPORT INFORMATION
  Report Type: 
  Country: None (occurrence: None)
  Receive Date: 20071221
  Receipt Date: 20071213
  Transmission Date: 20080405
  Serious: Yes (Other)
  Sender: FDA-Public Use
  Company Number: US-PFIZER INC-2007105268

PATIENT
  Sex: Female
  Weight: 57.727 kg

DRUGS (4)
  1. NEURONTIN [Suspect]
     Indication: HERPES ZOSTER
     Dosage: DAILY DOSE:100MG-FREQ:EVERYDAY
     Route: 048
  2. GABAPENTIN [Suspect]
  3. ZOCOR [Suspect]
  4. IBANDRONATE SODIUM [Concomitant]

REACTIONS (5)
  - BALANCE DISORDER [None]
  - BLOOD PRESSURE INCREASED [None]
  - DIZZINESS [None]
  - NERVE INJURY [None]
  - SOMNOLENCE [None]
